FAERS Safety Report 5259764-X (Version None)
Quarter: 2007Q1

REPORT INFORMATION
  Report Type: 
  Country: None (occurrence: None)
  Receive Date: 20061117
  Receipt Date: 20060516
  Transmission Date: 20070707
  Serious: Yes (Other)
  Sender: FDA-Public Use
  Company Number: US-JNJFOC-20060503848

PATIENT
  Sex: Male

DRUGS (2)
  1. LEVAQUIN [Suspect]
     Indication: BRONCHITIS
     Dates: start: 20060101
  2. AVELOX [Suspect]
     Indication: BRONCHITIS
     Dates: start: 20060101

REACTIONS (2)
  - TENDON DISORDER [None]
  - TENDON RUPTURE [None]
